FAERS Safety Report 17819047 (Version 4)
Quarter: 2021Q2

REPORT INFORMATION
  Report Type: Spontaneous
  Country: JP (occurrence: JP)
  Receive Date: 20200523
  Receipt Date: 20210531
  Transmission Date: 20210716
  Serious: Yes (Hospitalization, Other)
  Sender: FDA-Public Use
  Company Number: JP-AMGEN-JPNSP2019062111

PATIENT
  Age: 77 Year
  Sex: Female
  Weight: 40 kg

DRUGS (9)
  1. CALTAN [Concomitant]
     Active Substance: CALCIUM CARBONATE
     Dosage: 1 G, EVERYDAY
     Route: 065
  2. MIRCERA [Concomitant]
     Active Substance: METHOXY POLYETHYLENE GLYCOL-EPOETIN BETA
     Dosage: 150 UG, Q4W
     Route: 065
  3. OXAROL [Suspect]
     Active Substance: MAXACALCITOL
     Dosage: 5 UG, Q56H
     Route: 065
     Dates: start: 20180322, end: 20190305
  4. PARSABIV [Suspect]
     Active Substance: ETELCALCETIDE HYDROCHLORIDE
     Indication: HYPERPARATHYROIDISM SECONDARY
     Dosage: 5 MG, Q56H
     Route: 010
     Dates: start: 20180306, end: 20190209
  5. OXAROL [Suspect]
     Active Substance: MAXACALCITOL
     Indication: PRODUCT USED FOR UNKNOWN INDICATION
     Dosage: 2.5 UG, Q56H
     Route: 065
     Dates: end: 20180320
  6. OXAROL [Suspect]
     Active Substance: MAXACALCITOL
     Dosage: 2.5 UG, Q56H
     Route: 065
     Dates: start: 20190307, end: 20200630
  7. PARSABIV [Suspect]
     Active Substance: ETELCALCETIDE HYDROCHLORIDE
     Dosage: 2.5 MG, Q56H
     Route: 010
     Dates: start: 20190212
  8. FESIN [SACCHARATED IRON OXIDE] [Concomitant]
     Active Substance: IRON SUCROSE
     Dosage: 40 MG, EVERYDAY
     Route: 042
  9. OXAROL [Suspect]
     Active Substance: MAXACALCITOL
     Dosage: 2.5 MUG, Q84H
     Route: 065
     Dates: start: 20200704

REACTIONS (2)
  - Femur fracture [Recovering/Resolving]
  - Hypocalcaemia [Recovered/Resolved]

NARRATIVE: CASE EVENT DATE: 20180320
